FAERS Safety Report 6022300-4 (Version None)
Quarter: 2008Q4

REPORT INFORMATION
  Report Type: 
  Country: None (occurrence: None)
  Receive Date: 20081229
  Receipt Date: 20081229
  Transmission Date: 20090506
  Serious: No
  Sender: FDA-Public Use
  Company Number: None

PATIENT
  Age: 64 Year
  Sex: Female

DRUGS (2)
  1. LITHIUM CARBONATE [Suspect]
     Indication: BIPOLAR I DISORDER
     Dosage: 300 MG TWICE QD PO DAILY
     Route: 048
  2. ZYPREXA [Concomitant]

REACTIONS (1)
  - SALIVARY HYPERSECRETION [None]
